FAERS Safety Report 7221133-0 (Version None)
Quarter: 2011Q1

REPORT INFORMATION
  Report Type: 
  Country: None (occurrence: None)
  Receive Date: 20110112
  Receipt Date: 20110106
  Transmission Date: 20110831
  Serious: No
  Sender: FDA-Public Use
  Company Number: US-PFIZER INC-2011004027

PATIENT
  Sex: Female
  Weight: 105 kg

DRUGS (2)
  1. PRISTIQ [Suspect]
     Indication: FIBROMYALGIA
     Dosage: 50 MG, 1X/DAY
     Route: 048
     Dates: start: 20110103
  2. LEXAPRO [Suspect]
     Indication: DEPRESSION
     Dosage: UNK
     Dates: end: 20110103

REACTIONS (3)
  - PANIC ATTACK [None]
  - NAUSEA [None]
  - OFF LABEL USE [None]
